FAERS Safety Report 9787951 (Version 1)
Quarter: 2013Q4

REPORT INFORMATION
  Report Type: Spontaneous
  Country: US (occurrence: None)
  Receive Date: 20131227
  Receipt Date: 20131227
  Transmission Date: 20140711
  Serious: No
  Sender: FDA-Public Use
  Company Number: None

PATIENT
  Sex: Female
  Weight: 107.5 kg

DRUGS (2)
  1. GENERIC SOMA 350MG [Suspect]
     Indication: INTERVERTEBRAL DISC DEGENERATION
     Dosage: 350 MG  TID  PO
     Route: 048
  2. GENERIC SOMA 350MG [Suspect]
     Indication: INTERVERTEBRAL DISC PROTRUSION
     Dosage: 350 MG  TID  PO
     Route: 048

REACTIONS (2)
  - Nausea [None]
  - Vomiting [None]
